FAERS Safety Report 5462919-2 (Version None)
Quarter: 2007Q3

REPORT INFORMATION
  Report Type: 
  Country: None (occurrence: None)
  Receive Date: 20070920
  Receipt Date: 20070730
  Transmission Date: 20080115
  Serious: No
  Sender: FDA-Public Use
  Company Number: US-BAUSCH-2007BL002878

PATIENT
  Age: 50 Year
  Sex: Female

DRUGS (1)
  1. ALAWAY [Suspect]
     Indication: HYPERSENSITIVITY
     Route: 047
     Dates: start: 20070716, end: 20070722

REACTIONS (1)
  - EYE IRRITATION [None]
